FAERS Safety Report 8435466-3 (Version None)
Quarter: 2012Q2

REPORT INFORMATION
  Report Type: 
  Country: None (occurrence: None)
  Receive Date: 20120614
  Receipt Date: 20120610
  Transmission Date: 20120825
  Serious: Yes (Other)
  Sender: FDA-Public Use
  Company Number: US-PFIZER INC-2012139307

PATIENT
  Sex: Female
  Weight: 63.492 kg

DRUGS (8)
  1. LYRICA [Suspect]
     Dosage: 50 MG, DAILY
     Route: 048
  2. LYRICA [Suspect]
     Dosage: 200 MG, DAILY
     Route: 048
  3. DEXIDRINE [Concomitant]
     Indication: NARCOLEPSY
     Dosage: 90 MG, DAILY
  4. LYRICA [Suspect]
     Dosage: 150 MG, 2X/DAY
     Route: 048
  5. LYRICA [Suspect]
     Dosage: 100 MG, DAILY
     Route: 048
  6. LYRICA [Suspect]
     Dosage: 50 MG, 2X/DAY
     Route: 048
  7. LYRICA [Suspect]
     Dosage: 50 MG, 3X/DAY
     Route: 048
  8. PROZAC [Concomitant]
     Indication: DEPRESSION
     Dosage: 60 MG, DAILY

REACTIONS (7)
  - MALAISE [None]
  - DIZZINESS [None]
  - HEADACHE [None]
  - METAMORPHOPSIA [None]
  - ASTHENIA [None]
  - PAIN [None]
  - WITHDRAWAL SYNDROME [None]
